FAERS Safety Report 7088199-2 (Version None)
Quarter: 2010Q4

REPORT INFORMATION
  Report Type: 
  Country: None (occurrence: None)
  Receive Date: 20101108
  Receipt Date: 20101014
  Transmission Date: 20110411
  Serious: Yes (Hospitalization)
  Sender: FDA-Public Use
  Company Number: US-BAYER-200944080NA

PATIENT
  Age: 34 Year
  Sex: Female
  Weight: 67 kg

DRUGS (5)
  1. YAZ [Suspect]
     Indication: PRODUCT USED FOR UNKNOWN INDICATION
     Route: 048
     Dates: start: 20070801, end: 20071101
  2. YASMIN [Suspect]
     Indication: PRODUCT USED FOR UNKNOWN INDICATION
  3. LEXAPRO [Concomitant]
     Indication: DEPRESSION
     Dates: start: 20070701, end: 20090501
  4. ALEVE (CAPLET) [Concomitant]
     Dates: start: 20071101
  5. HYDROCODONE BITARTRATE [Concomitant]
     Indication: MIGRAINE
     Dates: start: 19900101

REACTIONS (3)
  - CHEST PAIN [None]
  - DYSPNOEA [None]
  - PULMONARY EMBOLISM [None]
